FAERS Safety Report 24732954 (Version 1)
Quarter: 2024Q4

REPORT INFORMATION
  Report Type: Report from Study
  Country: CA (occurrence: CA)
  Receive Date: 20241213
  Receipt Date: 20241213
  Transmission Date: 20250115
  Serious: Yes (Hospitalization, Other)
  Sender: LUNDBECK
  Company Number: CA-LUNDBECK-DKLU4007915

PATIENT

DRUGS (1)
  1. VYEPTI [Suspect]
     Active Substance: EPTINEZUMAB-JJMR
     Indication: Migraine
     Dosage: 100 MILLIGRAM
     Route: 041
     Dates: start: 20230104

REACTIONS (3)
  - Hysterectomy [Recovering/Resolving]
  - Post procedural complication [Recovering/Resolving]
  - Muscle strain [Recovering/Resolving]

NARRATIVE: CASE EVENT DATE: 20241028
